FAERS Safety Report 4929668-8 (Version None)
Quarter: 2006Q1

REPORT INFORMATION
  Report Type: 
  Country: None (occurrence: None)
  Receive Date: 20060224
  Receipt Date: 20060209
  Transmission Date: 20060701
  Serious: No
  Sender: FDA-Public Use
  Company Number: 2006S1000524

PATIENT
  Age: 12 Year
  Sex: Female

DRUGS (6)
  1. CLOZAPINE [Suspect]
     Indication: SCHIZOPHRENIA
     Dosage: SEE IMAGE, ORAL
     Route: 048
     Dates: start: 20040601, end: 20060116
  2. CLOZAPINE [Suspect]
     Indication: SCHIZOPHRENIA
     Dosage: SEE IMAGE, ORAL
     Route: 048
     Dates: start: 20060117, end: 20060124
  3. CLOZAPINE [Suspect]
     Indication: SCHIZOPHRENIA
     Dosage: SEE IMAGE, ORAL
     Route: 048
     Dates: start: 20060125, end: 20060202
  4. CLOZAPINE [Suspect]
     Indication: SCHIZOPHRENIA
     Dosage: SEE IMAGE, ORAL
     Route: 048
     Dates: start: 20060203
  5. TRINESSA (WATSON) [Suspect]
     Indication: ACNE
     Dosage: QD; ORAL
     Route: 048
     Dates: start: 20051215, end: 20060117
  6. DOXYCYCLINE [Concomitant]

REACTIONS (6)
  - AGITATION [None]
  - AKATHISIA [None]
  - DELUSION [None]
  - DROOLING [None]
  - HYPERKINESIA [None]
  - SEDATION [None]
